FAERS Safety Report 22587097 (Version 1)
Quarter: 2023Q2

REPORT INFORMATION
  Report Type: Spontaneous
  Country: GB (occurrence: GB)
  Receive Date: 20230612
  Receipt Date: 20230612
  Transmission Date: 20230721
  Serious: Yes (Other)
  Sender: FDA-Public Use
  Company Number: GB-JNJFOC-20230605539

PATIENT
  Sex: Female

DRUGS (3)
  1. TECLISTAMAB [Suspect]
     Active Substance: TECLISTAMAB
     Indication: Plasma cell myeloma
     Dosage: FIRST DOSE ON 21ST OF APRIL
     Route: 065
     Dates: start: 20230421
  2. TECLISTAMAB [Suspect]
     Active Substance: TECLISTAMAB
     Dosage: SECOND DOSE
     Route: 065
     Dates: start: 202304
  3. TECLISTAMAB [Suspect]
     Active Substance: TECLISTAMAB
     Dosage: THIRD DOSE ON 27-APR
     Route: 065
     Dates: start: 20230427

REACTIONS (2)
  - Abdominal pain [Recovering/Resolving]
  - Back pain [Recovering/Resolving]

NARRATIVE: CASE EVENT DATE: 20230401
